FAERS Safety Report 9123135 (Version 1)
Quarter: 2013Q1

REPORT INFORMATION
  Report Type: Spontaneous
  Country: US (occurrence: US)
  Receive Date: 20130115
  Receipt Date: 20130115
  Transmission Date: 20140127
  Serious: Yes (Other)
  Sender: FDA-Public Use
  Company Number: US-009507513-1301USA003379

PATIENT
  Age: 2 Year
  Sex: Male

DRUGS (4)
  1. SINGULAIR [Suspect]
     Indication: COUGH
     Route: 048
  2. PROCATEROL HYDROCHLORIDE [Suspect]
     Indication: ASTHMA
     Route: 050
  3. [THERAPY UNSPECIFIED] [Suspect]
     Indication: PRODUCT USED FOR UNKNOWN INDICATION
     Route: 048
  4. CLARITHROMYCIN [Suspect]
     Indication: PYREXIA
     Route: 048

REACTIONS (3)
  - Malaise [Unknown]
  - Heart rate increased [Unknown]
  - Asthenia [Unknown]
